FAERS Safety Report 8110757-4 (Version None)
Quarter: 2012Q1

REPORT INFORMATION
  Report Type: 
  Country: None (occurrence: None)
  Receive Date: 20120203
  Receipt Date: 20111110
  Transmission Date: 20120608
  Serious: No
  Sender: FDA-Public Use
  Company Number: US-GLAXOSMITHKLINE-A0953438A

PATIENT
  Age: 78 Year
  Sex: Female

DRUGS (3)
  1. GELNIQUE [Suspect]
     Dosage: 1SAC PER DAY
     Route: 061
     Dates: start: 20110901, end: 20111016
  2. GELNIQUE [Suspect]
     Indication: URINARY INCONTINENCE
     Dosage: 1SAC PER DAY
     Route: 061
     Dates: start: 20111017
  3. HORIZANT [Suspect]
     Indication: SLEEP APNOEA SYNDROME
     Route: 065
     Dates: start: 20111017

REACTIONS (2)
  - MUSCULAR WEAKNESS [None]
  - OFF LABEL USE [None]
